FAERS Safety Report 5484712-7 (Version None)
Quarter: 2007Q4

REPORT INFORMATION
  Report Type: 
  Country: None (occurrence: None)
  Receive Date: 20071012
  Receipt Date: 20071002
  Transmission Date: 20080405
  Serious: Yes (Hospitalization)
  Sender: FDA-Public Use
  Company Number: US-PFIZER INC-2007081669

PATIENT
  Sex: Male
  Weight: 72.6 kg

DRUGS (16)
  1. SUTENT [Suspect]
     Indication: PROSTATE CANCER
     Route: 048
  2. DOCETAXEL [Suspect]
     Indication: PROSTATE CANCER
     Route: 042
  3. PREDNISONE [Suspect]
     Indication: PROSTATE CANCER
     Route: 048
  4. PLAVIX [Concomitant]
     Route: 048
  5. ATENOLOL [Concomitant]
     Route: 048
     Dates: start: 19930101
  6. ACTONEL [Concomitant]
     Route: 048
     Dates: start: 20040101
  7. ELAVIL [Concomitant]
     Route: 048
     Dates: start: 19990101
  8. LUPRON [Concomitant]
     Route: 048
     Dates: start: 19900101
  9. VICODIN [Concomitant]
     Route: 048
     Dates: start: 20070529
  10. FENTANYL [Concomitant]
     Route: 062
     Dates: start: 20020101
  11. FIBERCON [Concomitant]
     Route: 048
     Dates: start: 20020101
  12. OSCAL [Concomitant]
     Route: 048
     Dates: start: 20040101
  13. SENOKOT [Concomitant]
     Route: 048
     Dates: start: 20070529
  14. PRILOSEC [Concomitant]
     Route: 048
     Dates: start: 19990101
  15. DEXAMETHASONE 0.5MG TAB [Concomitant]
     Route: 048
     Dates: start: 20070603
  16. POTASSIUM CHLORIDE [Concomitant]
     Route: 048
     Dates: start: 20070501

REACTIONS (1)
  - PNEUMONIA [None]
